FAERS Safety Report 18145045 (Version 1)
Quarter: 2020Q3

REPORT INFORMATION
  Report Type: Spontaneous
  Country: CA (occurrence: CA)
  Receive Date: 20200813
  Receipt Date: 20200813
  Transmission Date: 20201103
  Serious: Yes (Other)
  Sender: FDA-Public Use
  Company Number: CA-PFIZER INC-2020309364

PATIENT
  Age: 42 Year
  Sex: Male

DRUGS (14)
  1. SULFASALAZINE. [Suspect]
     Active Substance: SULFASALAZINE
     Dosage: 1 G, 2X/DAY
     Dates: start: 20200804
  2. FOLIC ACID. [Concomitant]
     Active Substance: FOLIC ACID
     Dosage: UNK
     Dates: start: 20200110
  3. METHOTREXATE PHARMASCIENCE [Concomitant]
     Active Substance: METHOTREXATE
     Dosage: UNK
     Dates: start: 20200110
  4. SULFASALAZINE. [Suspect]
     Active Substance: SULFASALAZINE
     Dosage: 500 MG
     Route: 048
     Dates: start: 20200110
  5. METHOTREXATE SODIUM. [Suspect]
     Active Substance: METHOTREXATE SODIUM
     Dosage: 20 MG WEEKLY
     Route: 048
     Dates: start: 20200804
  6. HYDROXYCHLOROQUINE [HYDROXYCHLOROQUINE SULFATE] [Suspect]
     Active Substance: HYDROXYCHLOROQUINE SULFATE
     Dosage: 400 MG
     Dates: start: 20190912
  7. HYDROXYCHLOROQUINE [HYDROXYCHLOROQUINE SULFATE] [Suspect]
     Active Substance: HYDROXYCHLOROQUINE SULFATE
     Dosage: 200 MG
     Route: 048
     Dates: start: 20200804
  8. FOLIC ACID. [Concomitant]
     Active Substance: FOLIC ACID
     Dosage: 5 MG, 1X/DAY
     Route: 048
     Dates: start: 20190612
  9. SULFASALAZINE. [Suspect]
     Active Substance: SULFASALAZINE
     Indication: RHEUMATOID ARTHRITIS
     Dosage: 1 G, 2X/DAY
     Dates: start: 20190912
  10. METHOTREXATE SODIUM. [Suspect]
     Active Substance: METHOTREXATE SODIUM
     Indication: RHEUMATOID ARTHRITIS
     Dosage: 15 MG WEEKLY
     Route: 048
     Dates: start: 20190612
  11. HYDROXYCHLOROQUINE [HYDROXYCHLOROQUINE SULFATE] [Suspect]
     Active Substance: HYDROXYCHLOROQUINE SULFATE
     Indication: RHEUMATOID ARTHRITIS
     Dosage: 400 MG, 1X/DAY
     Route: 048
     Dates: start: 20190612
  12. METHOTREXATE SODIUM. [Suspect]
     Active Substance: METHOTREXATE SODIUM
     Dosage: 20 MG, WEEKLY
     Route: 048
     Dates: start: 20190912
  13. HYDROXYCHLOROQUINE [HYDROXYCHLOROQUINE SULFATE] [Suspect]
     Active Substance: HYDROXYCHLOROQUINE SULFATE
     Dosage: 400 MG, ONCE DAILY X M
     Route: 048
     Dates: start: 20200110
  14. FOLIC ACID. [Concomitant]
     Active Substance: FOLIC ACID
     Dosage: 5 MG
     Route: 048
     Dates: start: 20200804

REACTIONS (4)
  - Hepatic fibrosis [Unknown]
  - Non-alcoholic steatohepatitis [Unknown]
  - Disease progression [Unknown]
  - Joint dislocation [Unknown]
